FAERS Safety Report 23195528 (Version 1)
Quarter: 2023Q4

REPORT INFORMATION
  Report Type: Spontaneous
  Country: JP (occurrence: JP)
  Receive Date: 20231117
  Receipt Date: 20231117
  Transmission Date: 20240110
  Serious: Yes (Hospitalization, Other)
  Sender: FDA-Public Use
  Company Number: JP-NATCOUSA-2023-NATCOUSA-000180

PATIENT
  Age: 80 Year
  Sex: Male

DRUGS (4)
  1. AZACITIDINE [Suspect]
     Active Substance: AZACITIDINE
     Indication: Myelodysplastic syndrome
     Dosage: 120 MG/DAY FOR 1 WEEK, FOLLOWED BY REST FOR 3 WEEKS
  2. MESALAMINE [Suspect]
     Active Substance: MESALAMINE
     Indication: Behcet^s syndrome
  3. PREDNISOLONE [Suspect]
     Active Substance: PREDNISOLONE
     Indication: Behcet^s syndrome
     Dosage: FOR 2 WEEKS
  4. COLCHICINE [Suspect]
     Active Substance: COLCHICINE
     Indication: Behcet^s syndrome

REACTIONS (3)
  - Cerebral infarction [Recovering/Resolving]
  - Neutropenia [Recovering/Resolving]
  - Treatment failure [Unknown]
